FAERS Safety Report 23954889 (Version 1)
Quarter: 2024Q2

REPORT INFORMATION
  Report Type: Spontaneous
  Country: US (occurrence: US)
  Receive Date: 20240610
  Receipt Date: 20240610
  Transmission Date: 20240716
  Serious: No
  Sender: FDA-Public Use
  Company Number: US-BIOGEN-2016BI00257925

PATIENT
  Sex: Female

DRUGS (1)
  1. TECFIDERA [Suspect]
     Active Substance: DIMETHYL FUMARATE
     Indication: Multiple sclerosis
     Dosage: 30-APR-2013
     Route: 050
     Dates: start: 20170303, end: 20201216

REACTIONS (3)
  - Multiple sclerosis [Unknown]
  - COVID-19 [Unknown]
  - Flushing [Unknown]
